FAERS Safety Report 20793366 (Version 1)
Quarter: 2022Q2

REPORT INFORMATION
  Report Type: Spontaneous
  Country: TW (occurrence: TW)
  Receive Date: 20220506
  Receipt Date: 20220506
  Transmission Date: 20220721
  Serious: Yes (Death, Other)
  Sender: FDA-Public Use
  Company Number: TW-KYOWAKIRIN-2022AKK006521

PATIENT
  Age: 55 Year
  Weight: 70 kg

DRUGS (4)
  1. FILGRASTIM [Suspect]
     Active Substance: FILGRASTIM
     Indication: Neutropenia
     Dosage: 300 MICROGRAM, QD
     Route: 058
     Dates: start: 20210721
  2. RITUXIMAB [Concomitant]
     Active Substance: RITUXIMAB
     Indication: Product used for unknown indication
     Dosage: UNK
     Dates: start: 20210712, end: 20210714
  3. CYTARABINE [Concomitant]
     Active Substance: CYTARABINE
     Indication: Product used for unknown indication
     Dosage: UNK
     Dates: start: 20210712, end: 20210714
  4. METHOTREXATE SODIUM [Concomitant]
     Active Substance: METHOTREXATE SODIUM
     Indication: Product used for unknown indication
     Dosage: UNK
     Dates: start: 20210712, end: 20210714

REACTIONS (1)
  - Death [Fatal]

NARRATIVE: CASE EVENT DATE: 20210722
